FAERS Safety Report 8185941-4 (Version None)
Quarter: 2012Q1

REPORT INFORMATION
  Report Type: 
  Country: None (occurrence: None)
  Receive Date: 20120305
  Receipt Date: 20120223
  Transmission Date: 20120608
  Serious: Yes (Other)
  Sender: FDA-Public Use
  Company Number: US-ASTRAZENECA-2012SE01161

PATIENT
  Age: 52 Year
  Sex: Male

DRUGS (4)
  1. SYNTHROID [Concomitant]
     Route: 048
  2. VANDETANIB [Suspect]
     Indication: THYROID CANCER
     Route: 048
  3. MUCINEX DM [Concomitant]
     Dosage: 30-600 MG BID
     Route: 048
  4. PILOCARPINE HCL [Concomitant]
     Route: 048

REACTIONS (9)
  - DECREASED APPETITE [None]
  - VOMITING [None]
  - RASH [None]
  - DIZZINESS [None]
  - HYPOAESTHESIA [None]
  - PALPITATIONS [None]
  - ACNE [None]
  - DIARRHOEA [None]
  - HAEMOPTYSIS [None]
